FAERS Safety Report 19711152 (Version 1)
Quarter: 2021Q3

REPORT INFORMATION
  Report Type: Report from Study
  Country: US (occurrence: US)
  Receive Date: 20210817
  Receipt Date: 20210817
  Transmission Date: 20211014
  Serious: Yes (Hospitalization)
  Sender: FDA-Public Use
  Company Number: US-BAYER-2021-141859

PATIENT
  Age: 65 Year
  Sex: Female
  Weight: 59.6 kg

DRUGS (2)
  1. COPANLISIB. [Suspect]
     Active Substance: COPANLISIB
     Indication: UTERINE CANCER
     Dosage: 60 MG, DAYS 1, 8 AND 15
     Route: 042
     Dates: start: 20210414, end: 20210422
  2. OLAPARIB. [Suspect]
     Active Substance: OLAPARIB
     Indication: UTERINE CANCER
     Dosage: 300 MG, BID
     Route: 048

REACTIONS (4)
  - Chills [Recovering/Resolving]
  - Dysphagia [Recovering/Resolving]
  - Stomatitis [Recovering/Resolving]
  - Rash maculo-papular [Recovering/Resolving]

NARRATIVE: CASE EVENT DATE: 20210427
